FAERS Safety Report 14648124 (Version 1)
Quarter: 2018Q1

REPORT INFORMATION
  Report Type: Spontaneous
  Country: US (occurrence: US)
  Receive Date: 20180315
  Receipt Date: 20180315
  Transmission Date: 20180509
  Serious: No
  Sender: FDA-Public Use
  Company Number: None

PATIENT
  Age: 72 Year
  Sex: Female

DRUGS (1)
  1. COPAXONE [Suspect]
     Active Substance: GLATIRAMER ACETATE

REACTIONS (6)
  - Fall [None]
  - Nuclear magnetic resonance imaging abnormal [None]
  - Hypoaesthesia [None]
  - Disease recurrence [None]
  - Paraesthesia [None]
  - Depression [None]

NARRATIVE: CASE EVENT DATE: 20180314
